FAERS Safety Report 9524012 (Version 1)
Quarter: 2013Q1

REPORT INFORMATION
  Report Type: Spontaneous
  Country: US (occurrence: None)
  Receive Date: 20130305
  Receipt Date: 20130305
  Transmission Date: 20140127
  Serious: Yes (Other)
  Sender: FDA-Public Use
  Company Number: 163-21880-12032534

PATIENT
  Age: 55 Year
  Sex: Female

DRUGS (9)
  1. REVLIMID (LENALIDOMIDE) (25 MILLIGRAM, CAPSULES) [Suspect]
     Indication: PLASMA CELL MYELOMA
     Route: 048
     Dates: start: 20100103
  2. FIBER (POLYCARBOPHIL CALCIUM) [Concomitant]
  3. COUMADIN (WARFARIN SODIUM) [Concomitant]
  4. LISINOPRIL (LISINOPRIL) [Concomitant]
  5. LEXAPRO (ESCITALOPRAM OXALATE) [Concomitant]
  6. VITAMIN D (ERGOCALCIFEROL) [Concomitant]
  7. IMODIUM (LOPERAMIDE) [Concomitant]
  8. OXYCODONE (OXYCODONE) [Concomitant]
  9. BENTYL (DICYCLOVERINE HYDROCHLORIDE) [Concomitant]

REACTIONS (1)
  - Bradycardia [None]
